FAERS Safety Report 16388867 (Version 1)
Quarter: 2019Q2

REPORT INFORMATION
  Report Type: Spontaneous
  Country: RU (occurrence: RU)
  Receive Date: 20190604
  Receipt Date: 20190604
  Transmission Date: 20190711
  Serious: Yes (Hospitalization, Other)
  Sender: FDA-Public Use
  Company Number: IND-RU-009507513-1905RUS013845

PATIENT
  Sex: Male

DRUGS (2)
  1. PRADAXA [Suspect]
     Active Substance: DABIGATRAN ETEXILATE MESYLATE
     Dosage: UNK
  2. ARCOXIA [Suspect]
     Active Substance: ETORICOXIB
     Dosage: UNK, 90MG

REACTIONS (2)
  - Atrial fibrillation [Unknown]
  - Gastric ulcer [Unknown]
